FAERS Safety Report 21258599 (Version 2)
Quarter: 2022Q3

REPORT INFORMATION
  Report Type: Spontaneous
  Country: US (occurrence: US)
  Receive Date: 20220826
  Receipt Date: 20220906
  Transmission Date: 20221027
  Serious: No
  Sender: FDA-Public Use
  Company Number: US-BAYER-2022A119848

PATIENT
  Age: 33 Year
  Sex: Female

DRUGS (2)
  1. MIRENA [Suspect]
     Active Substance: LEVONORGESTREL
     Indication: Contraception
     Dosage: 20?G/DAY
     Route: 015
     Dates: start: 20220330, end: 2022
  2. MIRENA [Suspect]
     Active Substance: LEVONORGESTREL
     Indication: Endometrial cancer

REACTIONS (2)
  - Device expulsion [Recovered/Resolved]
  - Off label use [None]

NARRATIVE: CASE EVENT DATE: 20220101
